FAERS Safety Report 7581486-0 (Version None)
Quarter: 2011Q2

REPORT INFORMATION
  Report Type: 
  Country: None (occurrence: None)
  Receive Date: 20110629
  Receipt Date: 20110620
  Transmission Date: 20111010
  Serious: Yes (Other)
  Sender: FDA-Public Use
  Company Number: PHHY2011CN55584

PATIENT
  Age: 88 Year
  Sex: Male
  Weight: 55 kg

DRUGS (5)
  1. SODIUM CHLORIDE [Concomitant]
  2. POTASSIUM [Concomitant]
  3. ZOLEDRONIC ACID [Suspect]
     Indication: OSTEOPOROSIS
     Route: 042
  4. VITAMIN D [Concomitant]
  5. CALCIUM CARBONATE [Concomitant]

REACTIONS (4)
  - GASTROINTESTINAL DISORDER [None]
  - CREATININE RENAL CLEARANCE DECREASED [None]
  - VOMITING [None]
  - NAUSEA [None]
